FAERS Safety Report 4477566-9 (Version None)
Quarter: 2004Q4

REPORT INFORMATION
  Report Type: 
  Country: None (occurrence: None)
  Receive Date: 20041012
  Receipt Date: 20040927
  Transmission Date: 20050328
  Serious: Yes (Death)
  Sender: FDA-Public Use
  Company Number: 2004071434

PATIENT
  Age: 2 Year
  Sex: Female

DRUGS (3)
  1. DIPHENHYDRAMINE HCL [Suspect]
     Dosage: ORAL
     Route: 048
  2. PSEUDOEPHEDRINE (ETHANOL)  (PSEUDOEPHEDRINE) [Suspect]
     Dosage: ORAL
     Route: 048
  3. PHENYLPROPANOLAMINE HCL [Suspect]
     Dosage: ORAL
     Route: 048

REACTIONS (8)
  - ACCIDENTAL EXPOSURE [None]
  - AGITATION [None]
  - COMA [None]
  - HALLUCINATION [None]
  - MEDICATION ERROR [None]
  - MULTIPLE DRUG OVERDOSE [None]
  - SCREAMING [None]
  - VOMITING [None]
